FAERS Safety Report 16424268 (Version 1)
Quarter: 2019Q2

REPORT INFORMATION
  Report Type: Spontaneous
  Country: IT (occurrence: IT)
  Receive Date: 20190613
  Receipt Date: 20190613
  Transmission Date: 20190711
  Serious: Yes (Other)
  Sender: FDA-Public Use
  Company Number: PHHY2019IT131924

PATIENT
  Age: 64 Year
  Sex: Female

DRUGS (4)
  1. PAMIDRONATE [Suspect]
     Active Substance: PAMIDRONATE DISODIUM
     Indication: METASTASES TO BONE
     Dosage: 90 MG, Q4W (OVER A 2- TO 4-H PERIOD)
     Route: 042
     Dates: start: 200102
  2. ZOLEDRONATE [Suspect]
     Active Substance: ZOLEDRONIC ACID
     Indication: METASTASES TO BONE
     Dosage: 4 MG, Q4W
     Route: 041
     Dates: start: 200204
  3. VINORELBINE [Concomitant]
     Active Substance: VINORELBINE\VINORELBINE TARTRATE
     Indication: PLEURAL MESOTHELIOMA
     Dosage: UNK
     Route: 065
     Dates: start: 200203, end: 200401
  4. GEMCITABINE [Concomitant]
     Active Substance: GEMCITABINE\GEMCITABINE HYDROCHLORIDE
     Indication: PLEURAL MESOTHELIOMA
     Dosage: UNK
     Route: 065

REACTIONS (6)
  - Mouth haemorrhage [Unknown]
  - Paraesthesia oral [Unknown]
  - Mouth ulceration [Unknown]
  - Exposed bone in jaw [Unknown]
  - Osteonecrosis of jaw [Unknown]
  - Pain in jaw [Unknown]

NARRATIVE: CASE EVENT DATE: 200212
